FAERS Safety Report 16352302 (Version 2)
Quarter: 2019Q3

REPORT INFORMATION
  Report Type: Spontaneous
  Country: US (occurrence: US)
  Receive Date: 20190524
  Receipt Date: 20190822
  Transmission Date: 20191004
  Serious: No
  Sender: FDA-Public Use
  Company Number: US-SHIRE-US201916968

PATIENT
  Age: 69 Year
  Sex: Female

DRUGS (1)
  1. NATPARA (PARATHYROID HORMONE) [Suspect]
     Active Substance: PARATHYROID HORMONE
     Indication: PRODUCT USED FOR UNKNOWN INDICATION
     Dosage: 100 MICROGRAM
     Route: 065
     Dates: start: 20171003

REACTIONS (2)
  - Amnesia [Not Recovered/Not Resolved]
  - Confusional state [Not Recovered/Not Resolved]

NARRATIVE: CASE EVENT DATE: 20190507
